FAERS Safety Report 5429604-4 (Version None)
Quarter: 2007Q3

REPORT INFORMATION
  Report Type: 
  Country: None (occurrence: None)
  Receive Date: 20070829
  Receipt Date: 20070822
  Transmission Date: 20080115
  Serious: Yes (Other)
  Sender: FDA-Public Use
  Company Number: US-ELI_LILLY_AND_COMPANY-US200708001794

PATIENT
  Age: 56 Year
  Sex: Female

DRUGS (24)
  1. HUMATROPE [Suspect]
     Indication: HYPOPITUITARISM
     Dosage: 0.1 MG, DAILY (1/D)
     Dates: start: 20070402, end: 20070726
  2. VOLTAREN                                /SCH/ [Concomitant]
     Dosage: 75 UNK, 2/D
  3. TRAZODONE HCL [Concomitant]
     Dosage: 225 UNK, EACH EVENING
  4. SOMA [Concomitant]
     Dosage: 300 MG, EACH EVENING
  5. SYNTHROID [Concomitant]
     Dosage: 112 UG, DAILY (1/D)
  6. CYTOMEL [Concomitant]
     Dosage: 5 MG, 2/D
  7. ZETIA [Concomitant]
     Dosage: UNK, EACH EVENING
  8. CITRICAL [Concomitant]
     Dosage: UNK, DAILY (1/D)
  9. VESICARE [Concomitant]
     Dosage: UNK, EACH EVENING
  10. ACIPHEX [Concomitant]
     Dosage: 20 MG, DAILY (1/D)
  11. LYRICA [Concomitant]
     Dosage: 75 MG, 2/D
  12. CORTEF [Concomitant]
     Dosage: 15 MG, EACH MORNING
  13. CORTEF [Concomitant]
     Dosage: 5 MG, EACH EVENING
  14. DURAGESIC-100 [Concomitant]
     Dosage: UNK, OTHER
     Route: 062
  15. DARVOCET [Concomitant]
     Dosage: UNK, AS NEEDED
  16. LASIX [Concomitant]
     Dosage: 40 MG, AS NEEDED
  17. LASIX [Concomitant]
     Dosage: 20 MG, AS NEEDED
     Dates: start: 20070711
  18. POTASSIUM CHLORIDE [Concomitant]
     Dosage: UNK, AS NEEDED
  19. KLONOPIN [Concomitant]
     Dosage: UNK, AS NEEDED
  20. ESTROGEL [Concomitant]
     Dosage: UNK, UNK
  21. ZANTAC 150 [Concomitant]
     Dosage: UNK, UNKNOWN
  22. PRILOSEC [Concomitant]
     Dosage: UNK, UNKNOWN
  23. PLAQUENIL [Concomitant]
     Dosage: 200 MG, 2/D
  24. ALL OTHER THERAPEUTIC PRODUCTS [Concomitant]
     Dosage: UNK, DAILY (1/D)
     Route: 061

REACTIONS (1)
  - BREAST CANCER [None]
